FAERS Safety Report 10716251 (Version 1)
Quarter: 2015Q1

REPORT INFORMATION
  Report Type: Spontaneous
  Country: US (occurrence: None)
  Receive Date: 20150109
  Receipt Date: 20150109
  Transmission Date: 20150721
  Serious: Yes (Hospitalization)
  Sender: FDA-Public Use
  Company Number: 2014PROUSA03848

PATIENT
  Age: 67 Year
  Sex: Male
  Weight: 81.4 kg

DRUGS (12)
  1. FLOMAX [Concomitant]
     Active Substance: TAMSULOSIN HYDROCHLORIDE
  2. LACTULOSE (LACTULOSE) [Concomitant]
     Active Substance: LACTULOSE
  3. FIRMAGON (DEGARELOX ACETATE) [Concomitant]
  4. MS CONTIN (MORPHINE SULFATE) [Concomitant]
  5. FLEXERIL [Concomitant]
     Active Substance: CYCLOBENZAPRINE HYDROCHLORIDE
  6. METHYLPHENIDATE (METHYLPHENIDATE HYDROCHLORIDE) [Concomitant]
  7. BENADRYL [Concomitant]
     Active Substance: DIPHENHYDRAMINE HYDROCHLORIDE
  8. OXYCODONE (OXYCODONE HYDROCHLORIDE) (OXYCODONE) [Concomitant]
     Active Substance: OXYCODONE
  9. VITAMIN B (VITAMIN B COMPLEX) [Concomitant]
  10. ALEVE (NAPROXEN SODIUM) [Concomitant]
  11. ONDANSETRON HCL(ONDANSETRON HYDROCHLORIDE) [Concomitant]
  12. PROVENGE [Suspect]
     Active Substance: SIPULEUCEL-T
     Indication: PROSTATE CANCER METASTATIC
     Dosage: 250 ML, SINGLE, INTRAVENOUS
     Route: 042
     Dates: start: 20140623, end: 20140623

REACTIONS (2)
  - Spinal cord compression [None]
  - Disease progression [None]

NARRATIVE: CASE EVENT DATE: 201406
